FAERS Safety Report 10207501 (Version 1)
Quarter: 2014Q2

REPORT INFORMATION
  Report Type: Report from Study
  Country: CA (occurrence: CA)
  Receive Date: 20140530
  Receipt Date: 20140530
  Transmission Date: 20141212
  Serious: Yes (Hospitalization)
  Sender: FDA-Public Use
  Company Number: CA-JNJFOC-20140515982

PATIENT
  Sex: Male
  Weight: 91 kg

DRUGS (10)
  1. REMICADE [Suspect]
     Indication: CROHN^S DISEASE
     Route: 042
     Dates: start: 20090101
  2. OLESTYR [Concomitant]
     Route: 065
  3. TEGRETOL [Concomitant]
     Route: 065
  4. RABEPRAZOLE [Concomitant]
     Route: 065
  5. CALCIUM [Concomitant]
     Route: 065
  6. PERCOCET [Concomitant]
     Dosage: AS NEEDED
     Route: 065
  7. GRAVOL [Concomitant]
     Dosage: AS NEEDED
     Route: 065
  8. VIT D [Concomitant]
     Route: 065
  9. IRON [Concomitant]
     Route: 065
  10. VIT C [Concomitant]
     Route: 065

REACTIONS (1)
  - Hernia [Unknown]
